FAERS Safety Report 13506551 (Version 1)
Quarter: 2017Q2

REPORT INFORMATION
  Report Type: Spontaneous
  Country: US (occurrence: US)
  Receive Date: 20170502
  Receipt Date: 20170502
  Transmission Date: 20170830
  Serious: No
  Sender: FDA-Public Use
  Company Number: US-ROCHE-1351450

PATIENT
  Age: 58 Year
  Sex: Female

DRUGS (10)
  1. CARBOPLATIN. [Concomitant]
     Active Substance: CARBOPLATIN
  2. LEXAPRO [Concomitant]
     Active Substance: ESCITALOPRAM OXALATE
     Dosage: AT HOUR OF SLEEP
     Route: 065
  3. COLACE [Concomitant]
     Active Substance: DOCUSATE SODIUM
     Route: 065
  4. TAXOL [Concomitant]
     Active Substance: PACLITAXEL
  5. AVASTIN [Suspect]
     Active Substance: BEVACIZUMAB
     Dosage: MAINTENANCE DOSE
     Route: 065
     Dates: start: 201311
  6. AVASTIN [Suspect]
     Active Substance: BEVACIZUMAB
     Route: 065
     Dates: start: 201401
  7. AVASTIN [Suspect]
     Active Substance: BEVACIZUMAB
     Indication: MALIGNANT PERITONEAL NEOPLASM
     Route: 065
     Dates: start: 20130127
  8. COUMADIN [Concomitant]
     Active Substance: WARFARIN SODIUM
     Route: 065
  9. LETROZOLE. [Concomitant]
     Active Substance: LETROZOLE
     Route: 065
  10. ALDACTONE [Concomitant]
     Active Substance: SPIRONOLACTONE
     Route: 065

REACTIONS (11)
  - Erythema [Recovered/Resolved]
  - Dehydration [Recovered/Resolved]
  - Epistaxis [Recovered/Resolved]
  - Choking sensation [Recovered/Resolved]
  - Swelling face [Recovered/Resolved]
  - Neck pain [Recovered/Resolved]
  - Vaginal discharge [Recovered/Resolved]
  - Constipation [Recovered/Resolved]
  - Skin discolouration [Recovered/Resolved]
  - Nail discolouration [Recovered/Resolved]
  - Lip discolouration [Recovered/Resolved]

NARRATIVE: CASE EVENT DATE: 20131218
